FAERS Safety Report 11063392 (Version 1)
Quarter: 2015Q2

REPORT INFORMATION
  Report Type: Spontaneous
  Country: US (occurrence: US)
  Receive Date: 20150424
  Receipt Date: 20150424
  Transmission Date: 20150821
  Serious: No
  Sender: FDA-Public Use
  Company Number: US-GLAXOSMITHKLINE-US2015033710

PATIENT
  Sex: Female

DRUGS (2)
  1. LYSINE [Concomitant]
     Active Substance: LYSINE
  2. ABREVA [Suspect]
     Active Substance: DOCOSANOL
     Indication: ORAL HERPES
     Route: 061

REACTIONS (7)
  - Application site exfoliation [Recovered/Resolved]
  - Application site erythema [Recovered/Resolved]
  - Application site pain [Recovered/Resolved]
  - Oral herpes [Recovered/Resolved]
  - Application site paraesthesia [Recovered/Resolved]
  - Cheilitis [Recovered/Resolved]
  - Drug administration error [Recovered/Resolved]
